FAERS Safety Report 21103739 (Version 3)
Quarter: 2023Q1

REPORT INFORMATION
  Report Type: Spontaneous
  Country: US (occurrence: US)
  Receive Date: 20220720
  Receipt Date: 20230131
  Transmission Date: 20230417
  Serious: No
  Sender: FDA-Public Use
  Company Number: US-BRISTOL-MYERS SQUIBB COMPANY-2022-068601

PATIENT
  Age: 56 Year
  Sex: Female

DRUGS (3)
  1. POMALYST [Suspect]
     Active Substance: POMALIDOMIDE
     Indication: Plasma cell myeloma
     Dosage: 1 CAPSULE (4 MILLIGRAM) FOR 21 DAYS ON THEN 7 DAYS OFF
     Route: 048
     Dates: start: 20200110
  2. POMALYST [Suspect]
     Active Substance: POMALIDOMIDE
     Dosage: FREQUENCY : TAKE 1 CAPSULE BY MOUTH EVERY DAY FOR 21 DAYS ON THEN 7 DAYS OFF
     Route: 048
  3. POMALYST [Suspect]
     Active Substance: POMALIDOMIDE
     Dosage: 1 CAPSULE (4 MILLIGRAM) FOR 21 DAYS ON THEN 7 DAYS OFF
     Route: 048

REACTIONS (3)
  - Sinus disorder [Unknown]
  - Sinusitis [Unknown]
  - Product dose omission issue [Unknown]
